FAERS Safety Report 4507582-X (Version None)
Quarter: 2004Q4

REPORT INFORMATION
  Report Type: 
  Country: None (occurrence: None)
  Receive Date: 20041123
  Receipt Date: 20041112
  Transmission Date: 20050328
  Serious: Yes (Other)
  Sender: FDA-Public Use
  Company Number: 200418802US

PATIENT
  Age: 74 Year
  Sex: Male
  Weight: 80 kg

DRUGS (4)
  1. TAXOTERE [Suspect]
     Indication: PANCREATIC CARCINOMA
     Route: 042
     Dates: start: 20041001, end: 20041029
  2. ENOXAPARIN [Suspect]
     Indication: PANCREATIC CARCINOMA
     Route: 058
     Dates: start: 20041007, end: 20041104
  3. IRINOTECAN [Suspect]
     Indication: PANCREATIC CARCINOMA
     Route: 042
     Dates: start: 20041029, end: 20041029
  4. CETUXIMAB [Suspect]
     Indication: PANCREATIC CARCINOMA
     Dosage: DOSE: 483MG GIVEN ON 22-OCT-04, 29-OCT-04, AND 05-NOV-04. TOTAL=1449MG
     Route: 042
     Dates: start: 20041105, end: 20041105

REACTIONS (2)
  - HYPERKALAEMIA [None]
  - HYPONATRAEMIA [None]
